FAERS Safety Report 21192714 (Version 1)
Quarter: 2022Q3

REPORT INFORMATION
  Report Type: Spontaneous
  Country: BR (occurrence: BR)
  Receive Date: 20220810
  Receipt Date: 20220810
  Transmission Date: 20221026
  Serious: Yes (Other)
  Sender: FDA-Public Use
  Company Number: BR-BRISTOL-MYERS SQUIBB COMPANY-2022-072148

PATIENT
  Sex: Male

DRUGS (1)
  1. REVLIMID [Suspect]
     Active Substance: LENALIDOMIDE
     Indication: Plasma cell myeloma refractory
     Dosage: DOSE : 20MG;     FREQ : DAILY, 28 CONSECUTIVE DAYS (CONTINUOUS USE)
     Route: 048

REACTIONS (3)
  - Plasma cell myeloma in remission [Unknown]
  - Plasma cell myeloma [Unknown]
  - Fracture [Unknown]
